FAERS Safety Report 21311229 (Version 1)
Quarter: 2022Q3

REPORT INFORMATION
  Report Type: Spontaneous
  Country: US (occurrence: None)
  Receive Date: 20220909
  Receipt Date: 20220909
  Transmission Date: 20221027
  Serious: No
  Sender: FDA-Public Use
  Company Number: US-ARIS GLOBAL-202202-0186

PATIENT
  Sex: Male

DRUGS (17)
  1. OXERVATE [Suspect]
     Active Substance: CENEGERMIN-BKBJ
     Indication: Neurotrophic keratopathy
     Route: 047
     Dates: start: 20210907, end: 20211102
  2. OXERVATE [Suspect]
     Active Substance: CENEGERMIN-BKBJ
     Route: 047
     Dates: start: 20211228
  3. OXERVATE [Suspect]
     Active Substance: CENEGERMIN-BKBJ
     Route: 047
     Dates: start: 20220502
  4. LORAZEPAM [Concomitant]
     Active Substance: LORAZEPAM
  5. OXYCODONE HYDROCHLORIDE [Concomitant]
     Active Substance: OXYCODONE HYDROCHLORIDE
  6. LIDO-PRILO CAINE PACK [Concomitant]
     Active Substance: LIDOCAINE\PRILOCAINE
  7. OMEPRAZOLE [Concomitant]
     Active Substance: OMEPRAZOLE
  8. BENZONATATE [Concomitant]
     Active Substance: BENZONATATE
  9. LISINOPRIL [Concomitant]
     Active Substance: LISINOPRIL
  10. POTASSIUM CHLORIDE [Concomitant]
     Active Substance: POTASSIUM CHLORIDE
  11. VITAMIN E [Concomitant]
     Active Substance: .ALPHA.-TOCOPHEROL
  12. ASPIRIN [Concomitant]
     Active Substance: ASPIRIN
  13. MIRTAZAPINE [Concomitant]
     Active Substance: MIRTAZAPINE
  14. MEMANTINE [Concomitant]
     Active Substance: MEMANTINE
  15. LATANOPROST [Concomitant]
     Active Substance: LATANOPROST
  16. FINASTERIDE [Concomitant]
     Active Substance: FINASTERIDE
  17. IRON [Concomitant]
     Active Substance: IRON
     Dosage: 325 (65) MG

REACTIONS (3)
  - Urinary tract infection [Unknown]
  - Product administration error [Unknown]
  - Product storage error [Unknown]
